FAERS Safety Report 14609588 (Version 1)
Quarter: 2018Q1

REPORT INFORMATION
  Report Type: Spontaneous
  Country: US (occurrence: US)
  Receive Date: 20180307
  Receipt Date: 20180307
  Transmission Date: 20180509
  Serious: No
  Sender: FDA-Public Use
  Company Number: US-ALLERGAN-1733979US

PATIENT
  Age: 56 Year
  Sex: Female

DRUGS (1)
  1. VIIBRYD [Suspect]
     Active Substance: VILAZODONE HYDROCHLORIDE
     Indication: PRODUCT USED FOR UNKNOWN INDICATION
     Route: 065

REACTIONS (5)
  - Anxiety [Unknown]
  - Withdrawal syndrome [Unknown]
  - Crying [Unknown]
  - Feeling abnormal [Unknown]
  - Drug dose omission [Unknown]
